FAERS Safety Report 4855565-2 (Version None)
Quarter: 2005Q4

REPORT INFORMATION
  Report Type: 
  Country: None (occurrence: None)
  Receive Date: 20051214
  Receipt Date: 20051201
  Transmission Date: 20060501
  Serious: Yes (Other)
  Sender: FDA-Public Use
  Company Number: 2005093881

PATIENT
  Sex: Male

DRUGS (6)
  1. CAMPTOSAR [Suspect]
     Indication: METASTATIC GASTRIC CANCER
  2. ASPIRIN [Concomitant]
  3. METOPROLOL SUCCINATE [Concomitant]
  4. LEUCOVORIN CALCIUM [Concomitant]
  5. FLUOROURACIL [Concomitant]
  6. DRUG, UNSPECIFIED (DRUG, UNSPECIFIED) [Concomitant]

REACTIONS (6)
  - CONFUSIONAL STATE [None]
  - FALL [None]
  - MYOCARDIAL INFARCTION [None]
  - REFUSAL OF TREATMENT BY PATIENT [None]
  - SPEECH DISORDER [None]
  - TREATMENT NONCOMPLIANCE [None]
